FAERS Safety Report 5497046-1 (Version None)
Quarter: 2007Q4

REPORT INFORMATION
  Report Type: 
  Country: None (occurrence: None)
  Receive Date: 20071018
  Receipt Date: 20061009
  Transmission Date: 20080405
  Serious: Yes (Hospitalization, Other)
  Sender: FDA-Public Use
  Company Number: 2004102750

PATIENT
  Age: 36 Year
  Sex: Female

DRUGS (7)
  1. NEURONTIN [Suspect]
     Indication: BIPOLAR DISORDER
     Dates: start: 20000101, end: 20040101
  2. NEURONTIN [Suspect]
     Indication: PAIN
     Dates: start: 20000101, end: 20040101
  3. ALL OTHER THERAPEUTIC PRODUCTS [Suspect]
     Indication: SLEEP DISORDER
  4. KLONOPIN [Concomitant]
  5. TOPAMAX [Concomitant]
  6. ZOLOFT [Concomitant]
  7. RISPERDAL [Concomitant]

REACTIONS (13)
  - BACK INJURY [None]
  - COMPLEX REGIONAL PAIN SYNDROME [None]
  - CONFUSIONAL STATE [None]
  - DEPRESSION [None]
  - DISORIENTATION [None]
  - DYSPEPSIA [None]
  - FALL [None]
  - INTERVERTEBRAL DISC PROTRUSION [None]
  - NAUSEA [None]
  - OVERDOSE [None]
  - SCIATICA [None]
  - SUICIDE ATTEMPT [None]
  - VISION BLURRED [None]
